FAERS Safety Report 19518631 (Version 1)
Quarter: 2021Q3

REPORT INFORMATION
  Report Type: Spontaneous
  Country: US (occurrence: US)
  Receive Date: 20210710
  Receipt Date: 20210710
  Transmission Date: 20211014
  Serious: Yes (Other)
  Sender: FDA-Public Use
  Company Number: None

PATIENT
  Age: 61 Year
  Sex: Female
  Weight: 62.1 kg

DRUGS (5)
  1. LEVONTHYROXINE [Concomitant]
  2. EMGALITY [Suspect]
     Active Substance: GALCANEZUMAB-GNLM
     Indication: MIGRAINE
     Dosage: ?          QUANTITY:1 INJECTION(S);OTHER FREQUENCY:MONTHLY;?
     Route: 058
     Dates: start: 20200902, end: 20210710
  3. CPAP [Concomitant]
     Active Substance: DEVICE
  4. VITAMIN D [Concomitant]
     Active Substance: VITAMIN D NOS
  5. MELOXICAM. [Concomitant]
     Active Substance: MELOXICAM

REACTIONS (1)
  - Weight increased [None]

NARRATIVE: CASE EVENT DATE: 20210710
